FAERS Safety Report 6632688-9 (Version None)
Quarter: 2010Q1

REPORT INFORMATION
  Report Type: 
  Country: None (occurrence: None)
  Receive Date: 20100312
  Receipt Date: 20091224
  Transmission Date: 20100710
  Serious: No
  Sender: FDA-Public Use
  Company Number: US-BAYER-201010299NA

PATIENT
  Age: 45 Year
  Sex: Female
  Weight: 93 kg

DRUGS (13)
  1. ULTRAVIST (PHARMACY BULK) [Suspect]
     Indication: COMPUTERISED TOMOGRAM THORAX
     Dosage: TOTAL DAILY DOSE: 25 ML  UNIT DOSE: 200 ML
     Route: 042
     Dates: start: 20091224, end: 20091224
  2. TOPROL-XL [Concomitant]
  3. SIMVASTATIN [Concomitant]
  4. DEMADEX [Concomitant]
  5. LISINOPRIL [Concomitant]
  6. ALLOPURINOL [Concomitant]
  7. CAPADEX [Concomitant]
  8. VALIUM [Concomitant]
  9. LYRICA [Concomitant]
  10. COZAAR [Concomitant]
     Dosage: AS USED: 50 MG
  11. LUNESTA [Concomitant]
  12. PREDNISONE [Concomitant]
  13. IRON SULFATETHIAMIN COMPOUND TAB [Concomitant]

REACTIONS (2)
  - DIZZINESS [None]
  - FLUSHING [None]
